FAERS Safety Report 20893723 (Version 1)
Quarter: 2022Q2

REPORT INFORMATION
  Report Type: Spontaneous
  Country: FR (occurrence: FR)
  Receive Date: 20220531
  Receipt Date: 20220531
  Transmission Date: 20220721
  Serious: Yes (Death, Other)
  Sender: FDA-Public Use
  Company Number: FR-VELOXIS PHARMACEUTICALS-2022VELFR-000348

PATIENT
  Age: 54 Year
  Sex: Female
  Weight: 50 kg

DRUGS (4)
  1. TACROLIMUS [Suspect]
     Active Substance: TACROLIMUS
     Indication: Heart transplant
     Dosage: 5.5 MILLIGRAM
     Route: 048
     Dates: start: 2017, end: 20220422
  2. TACROLIMUS [Suspect]
     Active Substance: TACROLIMUS
     Dosage: 1 MILLIGRAM
     Route: 048
     Dates: start: 20220422, end: 20220426
  3. EVEROLIMUS [Suspect]
     Active Substance: EVEROLIMUS
     Indication: Heart transplant
     Dosage: 5.4 MILLIGRAM
     Route: 048
     Dates: start: 2017, end: 20220422
  4. EVEROLIMUS [Suspect]
     Active Substance: EVEROLIMUS
     Dosage: 2.6 MILLIGRAM
     Route: 048
     Dates: start: 20220422, end: 20220426

REACTIONS (2)
  - Thrombotic microangiopathy [Fatal]
  - Off label use [Unknown]

NARRATIVE: CASE EVENT DATE: 20220422
